FAERS Safety Report 24922491 (Version 2)
Quarter: 2025Q2

REPORT INFORMATION
  Report Type: Report from Study
  Country: KR (occurrence: KR)
  Receive Date: 20250204
  Receipt Date: 20250509
  Transmission Date: 20250717
  Serious: Yes (Hospitalization)
  Sender: GUERBET
  Company Number: KR-GUERBET / KOREA-KR-20250004

PATIENT
  Age: 36 Year
  Sex: Female

DRUGS (5)
  1. LIPIODOL [Suspect]
     Active Substance: ETHIODIZED OIL
     Indication: Lymphangiogram
     Route: 027
     Dates: start: 20211013, end: 20211013
  2. LIPIODOL [Suspect]
     Active Substance: ETHIODIZED OIL
     Indication: Therapeutic embolisation
     Dosage: 17 ML OF N-BUTYL CYANOACRYLATE (NBCA) GLUE AND LIPIODOL (ETHIODIZED OIL) AT A RATIO OF 1:4
     Route: 027
  3. UNSPECIFIED INGREDIENT [Suspect]
     Active Substance: UNSPECIFIED INGREDIENT
     Indication: Therapeutic embolisation
     Route: 027
     Dates: start: 20211013, end: 20211013
  4. DEXTROSE [Suspect]
     Active Substance: DEXTROSE MONOHYDRATE
     Indication: Therapeutic embolisation
     Route: 027
  5. DOTAREM [Concomitant]
     Active Substance: GADOTERATE MEGLUMINE
     Indication: Lymphangiogram
     Dosage: 7.5 ML OF 50% DILUTED DOTAREM
     Route: 027
     Dates: start: 20210401, end: 20210401

REACTIONS (5)
  - Product use in unapproved indication [Recovered/Resolved]
  - Condition aggravated [Not Recovered/Not Resolved]
  - Pain [Recovered/Resolved]
  - Drug ineffective [Recovered/Resolved]
  - Erythema [Unknown]

NARRATIVE: CASE EVENT DATE: 20211013
